FAERS Safety Report 10745836 (Version 2)
Quarter: 2015Q2

REPORT INFORMATION
  Report Type: Spontaneous
  Country: US (occurrence: None)
  Receive Date: 20150120
  Receipt Date: 20150420
  Transmission Date: 20150821
  Serious: No
  Sender: FDA-Public Use
  Company Number: AEGR001037

PATIENT
  Age: 67 Year
  Sex: Female
  Weight: 74.8 kg

DRUGS (1)
  1. JUXTAPID [Suspect]
     Active Substance: LOMITAPIDE MESYLATE
     Indication: TYPE IIA HYPERLIPIDAEMIA
     Route: 048
     Dates: start: 20141201, end: 20150201

REACTIONS (7)
  - Flatulence [None]
  - Fatigue [None]
  - Muscle spasms [None]
  - Drug intolerance [None]
  - Therapy cessation [None]
  - Weight decreased [None]
  - Diarrhoea [None]

NARRATIVE: CASE EVENT DATE: 20141205
